FAERS Safety Report 18107857 (Version 1)
Quarter: 2020Q3

REPORT INFORMATION
  Report Type: Spontaneous
  Country: US (occurrence: US)
  Receive Date: 20200803
  Receipt Date: 20200803
  Transmission Date: 20201103
  Serious: Yes (Hospitalization)
  Sender: FDA-Public Use
  Company Number: US-GLAXOSMITHKLINE-US2020GSK143877

PATIENT
  Age: 64 Year
  Sex: Male

DRUGS (8)
  1. OLANZAPINE. [Interacting]
     Active Substance: OLANZAPINE
     Indication: CRANIOCEREBRAL INJURY
     Dosage: UNK
  2. MODAFINIL. [Interacting]
     Active Substance: MODAFINIL
     Indication: CRANIOCEREBRAL INJURY
     Dosage: UNK
  3. LAMOTRIGINE. [Suspect]
     Active Substance: LAMOTRIGINE
     Indication: CRANIOCEREBRAL INJURY
     Dosage: UNK
  4. LEVETIRACETAM. [Interacting]
     Active Substance: LEVETIRACETAM
     Indication: CRANIOCEREBRAL INJURY
     Dosage: UNK
  5. IMIPRAMINE [Interacting]
     Active Substance: IMIPRAMINE
     Indication: CRANIOCEREBRAL INJURY
     Dosage: UNK
  6. GABAPENTIN. [Interacting]
     Active Substance: GABAPENTIN
     Indication: CRANIOCEREBRAL INJURY
     Dosage: UNK
  7. ZOLPIDEM [Suspect]
     Active Substance: ZOLPIDEM TARTRATE
     Indication: CRANIOCEREBRAL INJURY
     Dosage: UNK
  8. CLARITHROMYCIN. [Interacting]
     Active Substance: CLARITHROMYCIN
     Indication: CRANIOCEREBRAL INJURY
     Dosage: UNK

REACTIONS (12)
  - Cognitive disorder [Recovered/Resolved]
  - Fall [Recovered/Resolved]
  - Gait disturbance [Recovered/Resolved]
  - Trismus [Recovered/Resolved]
  - Muscle rigidity [Recovered/Resolved]
  - Perseveration [Recovered/Resolved]
  - Delusion [Recovered/Resolved]
  - Confabulation [Recovered/Resolved]
  - Memory impairment [Recovered/Resolved]
  - Drug interaction [Unknown]
  - Mental status changes [Recovered/Resolved]
  - Paranoia [Recovered/Resolved]
